FAERS Safety Report 7444148-6 (Version None)
Quarter: 2011Q2

REPORT INFORMATION
  Report Type: 
  Country: None (occurrence: None)
  Receive Date: 20110428
  Receipt Date: 20110428
  Transmission Date: 20111010
  Serious: No
  Sender: FDA-Public Use
  Company Number: None

PATIENT
  Sex: Female
  Weight: 55 kg

DRUGS (1)
  1. SMITH AND NEPHEW SKIN PREP PAD [Suspect]
     Dates: start: 20110101, end: 20110401

REACTIONS (2)
  - VIRAL INFECTION [None]
  - INFLUENZA LIKE ILLNESS [None]
